FAERS Safety Report 14968048 (Version 2)
Quarter: 2018Q3

REPORT INFORMATION
  Report Type: Spontaneous
  Country: US (occurrence: US)
  Receive Date: 20180604
  Receipt Date: 20180706
  Transmission Date: 20181010
  Serious: No
  Sender: FDA-Public Use
  Company Number: US-PFIZER INC-2017313918

PATIENT
  Age: 11 Year
  Sex: Female
  Weight: 47.17 kg

DRUGS (10)
  1. GENOTROPIN [Suspect]
     Active Substance: SOMATROPIN
     Indication: SMALL FOR DATES BABY
     Dosage: 2 MG, DAILY (EVERY NIGHT)
  2. URSODIOL. [Concomitant]
     Active Substance: URSODIOL
     Indication: LIVER DISORDER
     Dosage: 250 MG, 2X/DAY
     Route: 048
  3. CETRIZINE [Concomitant]
     Active Substance: CETIRIZINE HYDROCHLORIDE
     Dosage: UNK
  4. VITAMIN D [Concomitant]
     Active Substance: CHOLECALCIFEROL
     Indication: VITAMIN D DECREASED
     Dosage: 2000 IU, DAILY
     Route: 048
  5. AQUADEKS [Concomitant]
     Active Substance: MINERALS\VITAMINS
     Dosage: UNK
     Dates: start: 20171206
  6. GENOTROPIN [Suspect]
     Active Substance: SOMATROPIN
     Dosage: 2 MG, 1X/DAY (QD)
     Route: 058
  7. VITAMIN D [Concomitant]
     Active Substance: CHOLECALCIFEROL
     Indication: SMALL FOR DATES BABY
     Dosage: 2 MG, 1X/DAY
     Route: 058
  8. GENOTROPIN [Suspect]
     Active Substance: SOMATROPIN
     Indication: BODY HEIGHT BELOW NORMAL
     Dosage: 2 MG, DAILY (EVERY NIGHT)
     Dates: start: 20090213
  9. GENOTROPIN [Suspect]
     Active Substance: SOMATROPIN
     Dosage: 2 MG, 1X/DAY
     Dates: end: 20171212
  10. FISH OIL [Concomitant]
     Active Substance: FISH OIL
     Dosage: 1000 IU, DAILY
     Route: 048

REACTIONS (9)
  - Drug dose omission [Unknown]
  - Mood altered [Unknown]
  - Arthralgia [Unknown]
  - Gait disturbance [Unknown]
  - Drug ineffective [Unknown]
  - Intentional device use issue [Unknown]
  - Sleep disorder [Unknown]
  - Anger [Unknown]
  - Incorrect dose administered [Unknown]

NARRATIVE: CASE EVENT DATE: 201707
